FAERS Safety Report 7986486-4 (Version None)
Quarter: 2011Q4

REPORT INFORMATION
  Report Type: 
  Country: None (occurrence: None)
  Receive Date: 20111216
  Receipt Date: 20110311
  Transmission Date: 20120403
  Serious: No
  Sender: FDA-Public Use
  Company Number: US-BRISTOL-MYERS SQUIBB COMPANY-15520000

PATIENT
  Age: 42 Year
  Sex: Male

DRUGS (4)
  1. ABILIFY [Suspect]
  2. SEROQUEL [Suspect]
  3. GEODON [Suspect]
  4. RISPERDAL [Suspect]

REACTIONS (1)
  - DRUG INEFFECTIVE [None]
